FAERS Safety Report 8773332 (Version 1)
Quarter: 2012Q4

REPORT INFORMATION
  Report Type: 
  Country: US (occurrence: US)
  Receive Date: 20120907
  Receipt Date: 20120907
  Transmission Date: 20130627
  Serious: No
  Sender: FDA-Public Use
  Company Number: US-TEVA-357452USA

PATIENT
  Age: 35 Year
  Sex: Female
  Weight: 74.91 kg

DRUGS (2)
  1. NUVIGIL [Suspect]
     Indication: ATTENTION DEFICIT/HYPERACTIVITY DISORDER
     Dosage: QAM
     Route: 048
     Dates: start: 20120825, end: 20120829
  2. NUVIGIL [Suspect]
     Indication: ENCEPHALITIS WESTERN EQUINE

REACTIONS (2)
  - Drug ineffective [Recovered/Resolved]
  - Off label use [Unknown]
